FAERS Safety Report 23877799 (Version 2)
Quarter: 2024Q3

REPORT INFORMATION
  Report Type: Spontaneous
  Country: US (occurrence: US)
  Receive Date: 20240521
  Receipt Date: 20240808
  Transmission Date: 20241017
  Serious: No
  Sender: LEO PHARM
  Company Number: US-LEO Pharma-370372

PATIENT
  Age: 23 Year
  Sex: Female

DRUGS (1)
  1. ADBRY [Suspect]
     Active Substance: TRALOKINUMAB-LDRM
     Indication: Product used for unknown indication
     Dosage: LOADING DOSE ADMINISTERED ON 08-MAY-2024
     Dates: start: 20240508

REACTIONS (3)
  - Urticaria [Unknown]
  - Pharyngeal swelling [Unknown]
  - Swelling [Unknown]

NARRATIVE: CASE EVENT DATE: 20240508
